FAERS Safety Report 11198405 (Version 1)
Quarter: 2015Q2

REPORT INFORMATION
  Report Type: Report from Study
  Country: SI (occurrence: SI)
  Receive Date: 20150618
  Receipt Date: 20150618
  Transmission Date: 20150821
  Serious: Yes (Death, Life-Threatening, Hospitalization)
  Sender: FDA-Public Use
  Company Number: SI-ACCORD-031447

PATIENT
  Age: 60 Year
  Sex: Male

DRUGS (3)
  1. ETOPOSIDE. [Suspect]
     Active Substance: ETOPOSIDE
     Indication: SMALL CELL LUNG CANCER
     Dosage: ETOPOSIDE 100 MG/M^2 (100 % DOSE) INTRAVENOUSLY ON DAY 1 THROUGH 3 IN FIRST CYCLE.
     Route: 042
  2. CARBOPLATIN. [Suspect]
     Active Substance: CARBOPLATIN
     Indication: SMALL CELL LUNG CANCER
     Dosage: DOSE: AREA UNDER THE CURVE (AUC) 5?6 MG MIN/ML (MAXIMALLY 350 MG/M2) ON DAY 2 OF FIRST CYCLE.
     Route: 042
  3. CISPLATIN. [Suspect]
     Active Substance: CISPLATIN
     Indication: SMALL CELL LUNG CANCER
     Dosage: ON DAY 2 OF FIRST CYCLE
     Route: 042

REACTIONS (3)
  - Pneumonia [Fatal]
  - Febrile neutropenia [Fatal]
  - Neutropenia [Unknown]
